FAERS Safety Report 13921572 (Version 1)
Quarter: 2017Q3

REPORT INFORMATION
  Report Type: Report from Study
  Country: US (occurrence: US)
  Receive Date: 20170830
  Receipt Date: 20170830
  Transmission Date: 20171127
  Serious: Yes (Death)
  Sender: FDA-Public Use
  Company Number: US-ARIAD-2016US007311

PATIENT
  Age: 54 Year
  Sex: Male

DRUGS (5)
  1. ICLUSIG [Suspect]
     Active Substance: PONATINIB
     Dosage: 45 MG, QD
     Route: 048
  2. ICLUSIG [Suspect]
     Active Substance: PONATINIB
     Indication: CHRONIC MYELOID LEUKAEMIA
     Dosage: 45 MG, QD
     Route: 048
     Dates: start: 20160915
  3. ICLUSIG [Suspect]
     Active Substance: PONATINIB
     Dosage: 30 MG, QD
     Route: 048
  4. ICLUSIG [Suspect]
     Active Substance: PONATINIB
     Dosage: 15 MG, QD
     Route: 048
  5. ICLUSIG [Suspect]
     Active Substance: PONATINIB
     Dosage: 45 MG, QD
     Route: 048

REACTIONS (3)
  - Death [Fatal]
  - Pain in extremity [Not Recovered/Not Resolved]
  - Dry skin [Not Recovered/Not Resolved]

NARRATIVE: CASE EVENT DATE: 20170818
